FAERS Safety Report 9304571 (Version 2)
Quarter: 2016Q2

REPORT INFORMATION
  Report Type: Report from Study
  Country: US (occurrence: US)
  Receive Date: 20130523
  Receipt Date: 20160525
  Transmission Date: 20160815
  Serious: Yes (Death)
  Sender: FDA-Public Use
  Company Number: US-ROCHE-1227866

PATIENT
  Sex: Male

DRUGS (3)
  1. ACTIVASE [Suspect]
     Active Substance: ALTEPLASE
     Indication: CEREBRAL ARTERY OCCLUSION
     Dosage: I VIAL
     Route: 040
     Dates: start: 20130312, end: 20130312
  2. ACTIVASE [Suspect]
     Active Substance: ALTEPLASE
     Route: 065
  3. ACTIVASE [Suspect]
     Active Substance: ALTEPLASE
     Route: 042
     Dates: start: 20130312, end: 20130312

REACTIONS (1)
  - Death [Fatal]
